FAERS Safety Report 24358132 (Version 1)
Quarter: 2024Q3

REPORT INFORMATION
  Report Type: Spontaneous
  Country: ID (occurrence: ID)
  Receive Date: 20240924
  Receipt Date: 20240924
  Transmission Date: 20241017
  Serious: Yes (Other)
  Sender: MERCK
  Company Number: ID-009507513-2409IDN007125

PATIENT
  Age: 49 Year
  Sex: Male

DRUGS (20)
  1. KEYTRUDA [Suspect]
     Active Substance: PEMBROLIZUMAB
     Indication: Lung squamous cell carcinoma stage IV
     Dosage: 100 MILLIGRAM, CYCLE 1
     Dates: start: 20220727, end: 20220727
  2. KEYTRUDA [Suspect]
     Active Substance: PEMBROLIZUMAB
     Indication: Lung squamous cell carcinoma metastatic
     Dosage: (PACLITAXEL + CARBOPLATIN) COMBINATION WITH PEMBROLIZUMAB 100 MG
     Dates: start: 20220813, end: 20220813
  3. KEYTRUDA [Suspect]
     Active Substance: PEMBROLIZUMAB
     Dosage: COMBINATION CHEMOTHERAPY WITH PEMBROLIZUMAB FOR CYCLES 3
  4. KEYTRUDA [Suspect]
     Active Substance: PEMBROLIZUMAB
     Dosage: COMBINATION CHEMOTHERAPY, CYCLE 4 WITH PEMBROLIZUMAB
     Dates: start: 20220922, end: 20220922
  5. KEYTRUDA [Suspect]
     Active Substance: PEMBROLIZUMAB
     Dosage: 100 MILLIGRAM, CYCLE 5, PEMBROLIZUMAB ONLY
     Dates: start: 20221013, end: 20221013
  6. KEYTRUDA [Suspect]
     Active Substance: PEMBROLIZUMAB
     Dosage: 100 MILLIGRAM, CYCLE 6
     Dates: start: 20221103, end: 20221103
  7. KEYTRUDA [Suspect]
     Active Substance: PEMBROLIZUMAB
     Dosage: 100 MILLIGRAM, CYCLE 7
     Dates: start: 20221130, end: 20221130
  8. KEYTRUDA [Suspect]
     Active Substance: PEMBROLIZUMAB
     Dosage: 100 MILLIGRAM, CYCLE 8
     Dates: start: 20221221, end: 20221221
  9. KEYTRUDA [Suspect]
     Active Substance: PEMBROLIZUMAB
     Dosage: 100 MILLIGRAM, CYCLE 9
     Dates: start: 20230118, end: 20230118
  10. KEYTRUDA [Suspect]
     Active Substance: PEMBROLIZUMAB
     Dosage: 100 MILLIGRAM, CYCLE 10
     Dates: start: 20230209, end: 20230209
  11. KEYTRUDA [Suspect]
     Active Substance: PEMBROLIZUMAB
     Dosage: 100 MILLIGRAM, CYCLE 11
     Dates: start: 20230301, end: 20230301
  12. KEYTRUDA [Suspect]
     Active Substance: PEMBROLIZUMAB
     Dosage: 100 MILLIGRAM, CYCLE 12
     Dates: start: 20230321, end: 20230321
  13. KEYTRUDA [Suspect]
     Active Substance: PEMBROLIZUMAB
     Dosage: CYCLE 13
     Dates: start: 202306, end: 202306
  14. KEYTRUDA [Suspect]
     Active Substance: PEMBROLIZUMAB
     Dosage: CYCLE 14
     Dates: start: 20230710, end: 20230710
  15. KEYTRUDA [Suspect]
     Active Substance: PEMBROLIZUMAB
     Dosage: CHEMOTHERAPY SERIES 2 (CYCLE 1) KEYTRUDA 100 MG
     Dates: start: 20240425, end: 20240425
  16. KEYTRUDA [Suspect]
     Active Substance: PEMBROLIZUMAB
     Dosage: CHEMOTHERAPY SERIES 2 (CYCLE 2) AND KEYTRUDA 100 MG
     Dates: start: 20240502, end: 20240502
  17. KEYTRUDA [Suspect]
     Active Substance: PEMBROLIZUMAB
     Dosage: CHEMOTHERAPY SERIES 2 (CYCLE 3) WITH KEYTRUDA 100 MG, (CYCLE 17)
     Dates: start: 20240522, end: 20240522
  18. KEYTRUDA [Suspect]
     Active Substance: PEMBROLIZUMAB
     Dosage: CHEMOTHERAPY SERIES 2 (CYCLE 4) WITH KEYTRUDA 100 MG (CYCLE 18)
     Dates: start: 20240612, end: 20240612
  19. KEYTRUDA [Suspect]
     Active Substance: PEMBROLIZUMAB
     Dosage: 100 MG (CYCLE 19)
     Dates: start: 20240702, end: 20240702
  20. KEYTRUDA [Suspect]
     Active Substance: PEMBROLIZUMAB
     Dosage: KEYTRUDA 100 MG (CYCLE 20)
     Dates: start: 20240814, end: 20240814

REACTIONS (26)
  - Malignant neoplasm progression [Unknown]
  - Urethrectomy [Unknown]
  - Pleural effusion [Unknown]
  - Therapeutic product effect incomplete [Unknown]
  - Paranasal cyst [Unknown]
  - Chest discomfort [Unknown]
  - Neck mass [Unknown]
  - Cough [Unknown]
  - Urethritis [Unknown]
  - Ureterolithiasis [Unknown]
  - Incorrect dose administered [Unknown]
  - Inappropriate schedule of product administration [Unknown]
  - Inappropriate schedule of product administration [Unknown]
  - Inappropriate schedule of product administration [Unknown]
  - Inappropriate schedule of product administration [Unknown]
  - Inappropriate schedule of product administration [Unknown]
  - Inappropriate schedule of product administration [Unknown]
  - Inappropriate schedule of product administration [Unknown]
  - Inappropriate schedule of product administration [Unknown]
  - Inappropriate schedule of product administration [Unknown]
  - Inappropriate schedule of product administration [Unknown]
  - Inappropriate schedule of product administration [Unknown]
  - Inappropriate schedule of product administration [Unknown]
  - Product dose omission issue [Unknown]
  - Economic problem [Unknown]
  - Product use issue [Unknown]

NARRATIVE: CASE EVENT DATE: 20220723
